FAERS Safety Report 21033900 (Version 2)
Quarter: 2022Q3

REPORT INFORMATION
  Report Type: Spontaneous
  Country: JP (occurrence: JP)
  Receive Date: 20220701
  Receipt Date: 20220718
  Transmission Date: 20221027
  Serious: Yes (Hospitalization, Other)
  Sender: FDA-Public Use
  Company Number: JP-LUNDBECK-DKLU3049461

PATIENT
  Age: 7 Decade
  Sex: Male

DRUGS (24)
  1. DROXIDOPA [Suspect]
     Active Substance: DROXIDOPA
     Indication: Product used for unknown indication
     Route: 048
     Dates: end: 202202
  2. ZONISAMIDE [Suspect]
     Active Substance: ZONISAMIDE
     Indication: Parkinson^s disease
     Route: 048
  3. ZONISAMIDE [Suspect]
     Active Substance: ZONISAMIDE
     Indication: Therapeutic response shortened
  4. ZONISAMIDE [Suspect]
     Active Substance: ZONISAMIDE
     Indication: Tremor
  5. DONEPEZIL HYDROCHLORIDE [Suspect]
     Active Substance: DONEPEZIL HYDROCHLORIDE
     Indication: Product used for unknown indication
     Route: 048
  6. CARBIDOPA\LEVODOPA [Suspect]
     Active Substance: CARBIDOPA\LEVODOPA
     Indication: Parkinson^s disease
     Route: 048
  7. BETAHISTINE MESILATE [Suspect]
     Active Substance: BETAHISTINE MESILATE
     Indication: Product used for unknown indication
     Route: 048
  8. RIVOTRIL [Suspect]
     Active Substance: CLONAZEPAM
     Indication: Product used for unknown indication
     Route: 048
  9. BROTIZOLAM [Suspect]
     Active Substance: BROTIZOLAM
     Indication: Product used for unknown indication
     Route: 048
  10. ROTIGOTINE [Suspect]
     Active Substance: ROTIGOTINE
     Indication: Parkinson^s disease
     Route: 062
  11. ROTIGOTINE [Suspect]
     Active Substance: ROTIGOTINE
     Route: 062
  12. ROTIGOTINE [Suspect]
     Active Substance: ROTIGOTINE
     Route: 062
  13. DISTIGMINE BROMIDE [Suspect]
     Active Substance: DISTIGMINE BROMIDE
     Indication: Product used for unknown indication
     Route: 048
  14. FLORINEF ACETATE [Suspect]
     Active Substance: FLUDROCORTISONE ACETATE
     Indication: Product used for unknown indication
     Route: 048
  15. DAYVIGO [Suspect]
     Active Substance: LEMBOREXANT
     Indication: Product used for unknown indication
     Route: 048
  16. ONGENTYS [Suspect]
     Active Substance: OPICAPONE
     Indication: Parkinson^s disease
     Route: 048
  17. ONGENTYS [Suspect]
     Active Substance: OPICAPONE
     Route: 048
  18. DOMPERIDONE [Suspect]
     Active Substance: DOMPERIDONE
     Indication: Constipation
     Route: 065
  19. HERBALS [Suspect]
     Active Substance: HERBALS
     Indication: Constipation
     Route: 048
  20. DANTRIUM [Suspect]
     Active Substance: DANTROLENE SODIUM
     Indication: Neuroleptic malignant syndrome
     Route: 065
  21. DANTRIUM [Suspect]
     Active Substance: DANTROLENE SODIUM
     Route: 065
  22. VITAMIN E PREPARATIONS [Concomitant]
     Indication: Hepatic steatosis
     Route: 065
  23. MOSAPRIDE CITRATE [Concomitant]
     Active Substance: MOSAPRIDE CITRATE
     Indication: Product used for unknown indication
     Route: 065
  24. AMEZINIUM METILSULFATE [Concomitant]
     Active Substance: AMEZINIUM METILSULFATE
     Indication: Orthostatic hypotension
     Route: 065

REACTIONS (15)
  - Dysphagia [Recovered/Resolved]
  - Dysphagia [Recovered/Resolved]
  - Neuroleptic malignant syndrome [Unknown]
  - Hallucination [Unknown]
  - Delusion [Unknown]
  - Hallucination [Unknown]
  - Akinesia [Unknown]
  - Muscle rigidity [Unknown]
  - Constipation [Unknown]
  - Hepatic steatosis [Unknown]
  - Insomnia [Unknown]
  - Blood creatine phosphokinase increased [Unknown]
  - Orthostatic hypotension [Unknown]
  - Therapeutic response shortened [Recovering/Resolving]
  - Tremor [Recovering/Resolving]

NARRATIVE: CASE EVENT DATE: 20210901
